FAERS Safety Report 8854285 (Version 1)
Quarter: 2012Q4

REPORT INFORMATION
  Report Type: Spontaneous
  Country: US (occurrence: None)
  Receive Date: 20121022
  Receipt Date: 20121022
  Transmission Date: 20130627
  Serious: Yes (Hospitalization)
  Sender: FDA-Public Use
  Company Number: None

PATIENT
  Sex: Male
  Weight: 16 kg

DRUGS (5)
  1. BUSULFAN [Suspect]
  2. CYCLOPHOSPHAMIDE [Suspect]
     Dosage: ast dose (4th dose) omitted due to grade 4 respiratory failure and patients unstable condition
  3. IMMUNOGLOBULINS [Suspect]
     Dosage: last two doses were omitted due to grade 4 respiratory failure and unstable condition
  4. MESNA [Suspect]
     Dosage: pt got 9 doses of Mesna total.  He did not get last 3 doses became he did not get last dose of Cytoxan
  5. METHOTREXATE [Suspect]

REACTIONS (9)
  - Skin lesion [None]
  - Fluid overload [None]
  - Bone marrow disorder [None]
  - Portal hypertension [None]
  - Weight increased [None]
  - Ascites [None]
  - Hyperbilirubinaemia [None]
  - Tumour lysis syndrome [None]
  - Respiratory failure [None]
